FAERS Safety Report 25944167 (Version 1)
Quarter: 2025Q4

REPORT INFORMATION
  Report Type: Spontaneous
  Country: EU (occurrence: EU)
  Receive Date: 20251021
  Receipt Date: 20251021
  Transmission Date: 20260118
  Serious: Yes (Other)
  Sender: HIKMA
  Company Number: EU-MLMSERVICE-20251006-PI664180-00128-3

PATIENT
  Age: 56 Year
  Sex: Male

DRUGS (6)
  1. DOXORUBICIN [Suspect]
     Active Substance: DOXORUBICIN
     Indication: Primary effusion lymphoma
     Dosage: COMPLETED 6 CYCLES OF R-CHOP
     Route: 065
  2. CYCLOPHOSPHAMIDE [Concomitant]
     Active Substance: CYCLOPHOSPHAMIDE
     Indication: Primary effusion lymphoma
     Dosage: COMPLETED 6 CYCLES OF R-CHOP
     Route: 065
     Dates: start: 2024
  3. EVEROLIMUS [Concomitant]
     Active Substance: EVEROLIMUS
     Indication: Immunosuppressant drug therapy
     Dosage: UNKNOWN
     Route: 065
  4. PREDNISONE [Concomitant]
     Active Substance: PREDNISONE
     Indication: Primary effusion lymphoma
     Dosage: COMPLETED 6 CYCLES OF R-CHOP
     Route: 065
     Dates: start: 2024
  5. RITUXIMAB [Concomitant]
     Active Substance: RITUXIMAB
     Indication: Primary effusion lymphoma
     Dosage: COMPLETED 6 CYCLES OF R-CHOP
     Route: 065
  6. VINCRISTINE [Concomitant]
     Active Substance: VINCRISTINE
     Indication: Primary effusion lymphoma
     Dosage: COMPLETED 6 CYCLES OF R-CHOP
     Route: 065
     Dates: start: 2024

REACTIONS (2)
  - Febrile neutropenia [Unknown]
  - Neurotoxicity [Unknown]

NARRATIVE: CASE EVENT DATE: 20250101
